FAERS Safety Report 25175695 (Version 2)
Quarter: 2025Q4

REPORT INFORMATION
  Report Type: Report from Study
  Country: US (occurrence: US)
  Receive Date: 20250408
  Receipt Date: 20251004
  Transmission Date: 20260117
  Serious: Yes (Other)
  Sender: ABBVIE
  Company Number: US-ABBVIE-6218325

PATIENT
  Age: 84 Year
  Sex: Male

DRUGS (3)
  1. IMBRUVICA [Suspect]
     Active Substance: IBRUTINIB
     Indication: Product used for unknown indication
     Dosage: HE WENT OFF THE IMBRUVICA FOR 5 DAYS BEFORE HIS DENTAL SURGERY
     Route: 048
  2. IMBRUVICA [Suspect]
     Active Substance: IBRUTINIB
     Indication: Product used for unknown indication
     Dosage: RESTARTED
     Route: 048
  3. IMBRUVICA [Suspect]
     Active Substance: IBRUTINIB
     Indication: Product used for unknown indication
     Dosage: TOOK 3 DAYS OFF BEFORE AND AFTER FOR HIS SHOULDER SURGERY
     Route: 048

REACTIONS (3)
  - Shoulder operation [Recovered/Resolved]
  - Pyrexia [Recovered/Resolved]
  - Dental operation [Recovered/Resolved]

NARRATIVE: CASE EVENT DATE: 20250401
